FAERS Safety Report 13969757 (Version 1)
Quarter: 2017Q3

REPORT INFORMATION
  Report Type: Spontaneous
  Country: ZA (occurrence: ZA)
  Receive Date: 20170914
  Receipt Date: 20170914
  Transmission Date: 20171128
  Serious: Yes (Death)
  Sender: FDA-Public Use
  Company Number: ZA-PFIZER INC-2017392657

PATIENT

DRUGS (4)
  1. ZETOMAX [Suspect]
     Active Substance: LISINOPRIL
     Dosage: UNK
  2. ECOTRIN [Suspect]
     Active Substance: ASPIRIN
     Dosage: UNK
  3. TREPILINE /00002201/ [Suspect]
     Active Substance: AMITRIPTYLINE
     Dosage: UNK
  4. ZOLOFT [Suspect]
     Active Substance: SERTRALINE HYDROCHLORIDE
     Dosage: UNK

REACTIONS (1)
  - Death [Fatal]
